FAERS Safety Report 24127777 (Version 1)
Quarter: 2024Q3

REPORT INFORMATION
  Report Type: Spontaneous
  Country: US (occurrence: None)
  Receive Date: 20240723
  Receipt Date: 20240723
  Transmission Date: 20241016
  Serious: Yes (Hospitalization)
  Sender: Public
  Company Number: None

PATIENT
  Age: 67 Year
  Sex: Female
  Weight: 119.8 kg

DRUGS (1)
  1. TAXOL [Suspect]
     Active Substance: PACLITAXEL

REACTIONS (4)
  - Peripheral motor neuropathy [None]
  - Spinal cord compression [None]
  - Muscular weakness [None]
  - Therapy interrupted [None]

NARRATIVE: CASE EVENT DATE: 20240712
